FAERS Safety Report 22622508 (Version 1)
Quarter: 2023Q2

REPORT INFORMATION
  Report Type: Report from Study
  Country: US (occurrence: None)
  Receive Date: 20230621
  Receipt Date: 20230621
  Transmission Date: 20230721
  Serious: Yes (Other)
  Sender: FDA-Public Use
  Company Number: 2023A139567

PATIENT
  Sex: Female
  Weight: 75.3 kg

DRUGS (1)
  1. BRILINTA [Suspect]
     Active Substance: TICAGRELOR
     Indication: Cardiac disorder
     Dosage: UNKNOWN
     Route: 048

REACTIONS (2)
  - Weight decreased [Unknown]
  - Product use issue [Unknown]
